FAERS Safety Report 16899919 (Version 1)
Quarter: 2019Q4

REPORT INFORMATION
  Report Type: Spontaneous
  Country: US (occurrence: US)
  Receive Date: 20191009
  Receipt Date: 20191009
  Transmission Date: 20200122
  Serious: No
  Sender: FDA-Public Use
  Company Number: US-ASTRAZENECA-2019SF29655

PATIENT
  Age: 23700 Day
  Sex: Male
  Weight: 106.6 kg

DRUGS (1)
  1. BYDUREON BCISE [Suspect]
     Active Substance: EXENATIDE
     Indication: BLOOD GLUCOSE INCREASED
     Route: 058
     Dates: start: 20190825

REACTIONS (7)
  - Off label use [Unknown]
  - Device leakage [Unknown]
  - Intentional device misuse [Recovered/Resolved]
  - Wrong technique in device usage process [Not Recovered/Not Resolved]
  - Injection site pain [Unknown]
  - Incorrect dose administered by device [Not Recovered/Not Resolved]
  - Product use in unapproved indication [Unknown]

NARRATIVE: CASE EVENT DATE: 20190825
